FAERS Safety Report 24724160 (Version 1)
Quarter: 2024Q4

REPORT INFORMATION
  Report Type: Report from Study
  Country: US (occurrence: US)
  Receive Date: 20241211
  Receipt Date: 20241211
  Transmission Date: 20250114
  Serious: Yes (Hospitalization)
  Sender: JOHNSON AND JOHNSON
  Company Number: US-JNJFOC-20241208883

PATIENT
  Age: 6 Decade
  Sex: Female

DRUGS (6)
  1. SPRAVATO [Suspect]
     Active Substance: ESKETAMINE
     Indication: Depression
     Dosage: ^84 MG, 1 TOTAL DOSE^
     Route: 045
     Dates: start: 20200904, end: 20200904
  2. SPRAVATO [Suspect]
     Active Substance: ESKETAMINE
     Dosage: ^56 MG, 4 TOTAL DOSES^
     Route: 045
     Dates: start: 20200912, end: 20201005
  3. SPRAVATO [Suspect]
     Active Substance: ESKETAMINE
     Dosage: ^84 MG, 3 TOTAL DOSES^
     Route: 045
     Dates: start: 20201019, end: 20201105
  4. SPRAVATO [Suspect]
     Active Substance: ESKETAMINE
     Dosage: ^84 MG, 10 TOTAL DOSES^
     Route: 045
     Dates: start: 20221104, end: 20230203
  5. SPRAVATO [Suspect]
     Active Substance: ESKETAMINE
     Dosage: ^56 MG, 9 TOTAL DOSES^
     Route: 045
     Dates: start: 20201112, end: 20221031
  6. SPRAVATO [Suspect]
     Active Substance: ESKETAMINE
     Dosage: ^56 MG, 5 TOTAL DOSES^
     Route: 045
     Dates: start: 20200528, end: 20200825

REACTIONS (1)
  - Vagal nerve stimulator implantation [Unknown]
